FAERS Safety Report 13355659 (Version 2)
Quarter: 2017Q4

REPORT INFORMATION
  Report Type: Spontaneous
  Country: US (occurrence: US)
  Receive Date: 20170321
  Receipt Date: 20171114
  Transmission Date: 20180320
  Serious: No
  Sender: FDA-Public Use
  Company Number: US-BAUSCH-BL-2016-025714

PATIENT
  Sex: Female

DRUGS (2)
  1. RETIN-A MICRO [Suspect]
     Active Substance: TRETINOIN
     Dosage: AS DIRECTED
     Route: 061
     Dates: start: 201610
  2. RETIN-A MICRO [Suspect]
     Active Substance: TRETINOIN
     Indication: PRODUCT USED FOR UNKNOWN INDICATION
     Dosage: AS DIRECTED
     Route: 061
     Dates: start: 20160604, end: 2016

REACTIONS (2)
  - Skin irritation [Unknown]
  - Product quality issue [Unknown]
